FAERS Safety Report 17546405 (Version 1)
Quarter: 2020Q1

REPORT INFORMATION
  Report Type: Other
  Country: US (occurrence: US)
  Receive Date: 20200316
  Receipt Date: 20200316
  Transmission Date: 20200409
  Serious: Yes (Hospitalization)
  Sender: FDA-Public Use
  Company Number: US-B.BRAUN MEDICAL INC.-2081648

PATIENT
  Age: 44 Year
  Sex: Male

DRUGS (3)
  1. XIFAXAN [Concomitant]
     Active Substance: RIFAXIMIN
  2. CIPROFLAXIN [Concomitant]
     Active Substance: CIPROFLOXACIN
  3. METRONIDAZOLE INJECTION USP (5 MG/ML) IN PAB? PLASTIC CONTAINER (NDA 0 [Suspect]
     Active Substance: METRONIDAZOLE

REACTIONS (1)
  - Drug ineffective [None]
